FAERS Safety Report 14038795 (Version 3)
Quarter: 2018Q1

REPORT INFORMATION
  Report Type: Report from Study
  Country: US (occurrence: US)
  Receive Date: 20171004
  Receipt Date: 20180131
  Transmission Date: 20180508
  Serious: Yes (Death, Hospitalization, Other)
  Sender: FDA-Public Use
  Company Number: US-GILEAD-2017-0295973

PATIENT

DRUGS (16)
  1. AMIODARONE [Concomitant]
     Active Substance: AMIODARONE
  2. LIPITOR [Concomitant]
     Active Substance: ATORVASTATIN CALCIUM
  3. SEROQUEL [Concomitant]
     Active Substance: QUETIAPINE FUMARATE
  4. RANOLAZINE. [Suspect]
     Active Substance: RANOLAZINE
     Indication: VENTRICULAR ARRHYTHMIA
     Route: 065
  5. ASPIRIN                            /00002701/ [Concomitant]
     Active Substance: ASPIRIN
  6. PAXIL [Concomitant]
     Active Substance: PAROXETINE HYDROCHLORIDE
  7. CARVEDILOL-RATIOPHARM [Concomitant]
  8. LISINOPRIL. [Concomitant]
     Active Substance: LISINOPRIL
  9. SPIRONOLACTONE. [Concomitant]
     Active Substance: SPIRONOLACTONE
  10. FLUTICASONE. [Concomitant]
     Active Substance: FLUTICASONE
  11. COLCHICINE. [Concomitant]
     Active Substance: COLCHICINE
  12. WARFARIN [Concomitant]
     Active Substance: WARFARIN
  13. LASIX [Concomitant]
     Active Substance: FUROSEMIDE
  14. FAMOTIDINE. [Concomitant]
     Active Substance: FAMOTIDINE
  15. FERROUS SULFATE. [Concomitant]
     Active Substance: FERROUS SULFATE
  16. ISOSORBIDE MONONITRATE. [Concomitant]
     Active Substance: ISOSORBIDE MONONITRATE

REACTIONS (8)
  - Cardiac failure [Fatal]
  - Mental disorder [Unknown]
  - Gastrointestinal disorder [Unknown]
  - Overdose [Recovered/Resolved]
  - Renal disorder [Unknown]
  - Atrial fibrillation [Unknown]
  - Chest pain [Unknown]
  - Electrocardiogram QT prolonged [Unknown]
